FAERS Safety Report 6234855-5 (Version None)
Quarter: 2009Q2

REPORT INFORMATION
  Report Type: 
  Country: None (occurrence: None)
  Receive Date: 20090618
  Receipt Date: 20090608
  Transmission Date: 20091009
  Serious: Yes (Other)
  Sender: FDA-Public Use
  Company Number: US-MYLANLABS-2009S1010289

PATIENT
  Age: 57 Year
  Sex: Female
  Weight: 81.65 kg

DRUGS (4)
  1. HYDROXYCHLOROQUINE SULFATE [Suspect]
     Indication: RHEUMATOID FACTOR POSITIVE
     Route: 048
     Dates: start: 20090507, end: 20090531
  2. HYDROXYCHLOROQUINE SULFATE [Suspect]
     Indication: GOUT
     Route: 048
     Dates: start: 20090507, end: 20090531
  3. AVALIDE [Concomitant]
     Indication: BLOOD PRESSURE INCREASED
     Dosage: 150MG/12.5MG
     Route: 048
  4. VERAPAMIL [Concomitant]
     Indication: BLOOD PRESSURE INCREASED
     Route: 048

REACTIONS (1)
  - HYPERSENSITIVITY [None]
